FAERS Safety Report 5394283-1 (Version None)
Quarter: 2007Q3

REPORT INFORMATION
  Report Type: 
  Country: None (occurrence: None)
  Receive Date: 20070723
  Receipt Date: 20070522
  Transmission Date: 20080115
  Serious: No
  Sender: FDA-Public Use
  Company Number: A0652411A

PATIENT
  Age: 56 Year
  Sex: Female

DRUGS (3)
  1. AVANDIA [Suspect]
     Route: 048
  2. PRANDIN [Concomitant]
  3. METFORMIN HCL [Concomitant]

REACTIONS (3)
  - JOINT SWELLING [None]
  - LOCAL SWELLING [None]
  - SWELLING [None]
